FAERS Safety Report 4721861-2 (Version None)
Quarter: 2005Q3

REPORT INFORMATION
  Report Type: 
  Country: None (occurrence: None)
  Receive Date: 20050721
  Receipt Date: 20050516
  Transmission Date: 20060218
  Serious: No
  Sender: FDA-Public Use
  Company Number: US-BRISTOL-MYERS SQUIBB COMPANY-12969440

PATIENT
  Age: 78 Year
  Sex: Male
  Weight: 84 kg

DRUGS (6)
  1. COUMADIN [Suspect]
     Indication: ATRIAL FIBRILLATION
     Dosage: 7.5 MG SUNDAY, MONDAY, WEDNESDAY, FRIDAY, SATURDAY, AND 10 MG TUESDAY AND THURSDAY.
  2. PROCAINAMIDE HCL [Concomitant]
  3. LOVASTATIN [Concomitant]
  4. BENAZEPRIL HCL [Concomitant]
  5. ASCORBIC ACID [Concomitant]
  6. CALTRATE VITAMINE D3 [Concomitant]

REACTIONS (2)
  - HAEMATURIA [None]
  - RENAL CYST [None]
